FAERS Safety Report 8304112-1 (Version None)
Quarter: 2012Q2

REPORT INFORMATION
  Report Type: 
  Country: None (occurrence: None)
  Receive Date: 20120423
  Receipt Date: 20120409
  Transmission Date: 20120825
  Serious: Yes (Other)
  Sender: FDA-Public Use
  Company Number: US-SANOFI-AVENTIS-2012SA017684

PATIENT
  Age: 53 Year
  Sex: Female
  Weight: 77.11 kg

DRUGS (4)
  1. ALLEGRA [Suspect]
     Route: 048
     Dates: start: 20120307, end: 20120308
  2. ALLEGRA [Suspect]
     Route: 048
     Dates: start: 20120307, end: 20120308
  3. MUCINEX [Suspect]
     Dates: start: 20120307, end: 20120325
  4. ALLEGRA [Suspect]
     Indication: SINUS CONGESTION
     Route: 048
     Dates: start: 20120307, end: 20120308

REACTIONS (3)
  - DEHYDRATION [None]
  - LOSS OF CONSCIOUSNESS [None]
  - THERAPEUTIC PRODUCT INEFFECTIVE FOR UNAPPROVED INDICATION [None]
